FAERS Safety Report 22089439 (Version 3)
Quarter: 2023Q2

REPORT INFORMATION
  Report Type: Spontaneous
  Country: US (occurrence: US)
  Receive Date: 20230313
  Receipt Date: 20230407
  Transmission Date: 20230721
  Serious: Yes (Other)
  Sender: FDA-Public Use
  Company Number: US-SUNOVION-2023SUN000393

PATIENT
  Age: 60 Year
  Sex: Female
  Weight: 95.708 kg

DRUGS (1)
  1. LATUDA [Suspect]
     Active Substance: LURASIDONE HYDROCHLORIDE
     Indication: Bipolar disorder
     Dosage: 40 MG, QD
     Route: 048
     Dates: start: 20221122, end: 20230320

REACTIONS (5)
  - Nephrolithiasis [Recovered/Resolved]
  - Postmenopausal haemorrhage [Recovered/Resolved]
  - Vulvovaginal dryness [Recovered/Resolved]
  - Pain [Unknown]
  - Abdominal pain [Unknown]

NARRATIVE: CASE EVENT DATE: 20230101
